FAERS Safety Report 22363099 (Version 1)
Quarter: 2023Q2

REPORT INFORMATION
  Report Type: Spontaneous
  Country: US (occurrence: US)
  Receive Date: 20230525
  Receipt Date: 20230525
  Transmission Date: 20230721
  Serious: No
  Sender: FDA-Public Use
  Company Number: US-SANOFI-01621706

PATIENT
  Age: 51 Year
  Sex: Female

DRUGS (2)
  1. DUPIXENT [Suspect]
     Active Substance: DUPILUMAB
     Indication: Eczema
     Dosage: 600 MG, 1X
     Route: 058
     Dates: start: 20230414, end: 20230414
  2. DUPIXENT [Suspect]
     Active Substance: DUPILUMAB
     Dosage: 300 MG, QOW
     Route: 058
     Dates: start: 20230428

REACTIONS (14)
  - Lip pain [Unknown]
  - Chapped lips [Unknown]
  - Cheilitis [Unknown]
  - Arthropathy [Unknown]
  - Dysania [Unknown]
  - Lip swelling [Unknown]
  - Asthenia [Unknown]
  - Pigmentation disorder [Unknown]
  - Injection site reaction [Recovered/Resolved]
  - Condition aggravated [Recovered/Resolved]
  - Rash [Unknown]
  - Erythema [Unknown]
  - Arthralgia [Unknown]
  - Therapeutic product effect incomplete [Unknown]

NARRATIVE: CASE EVENT DATE: 20230428
